FAERS Safety Report 4356847-3 (Version None)
Quarter: 2004Q2

REPORT INFORMATION
  Report Type: 
  Country: None (occurrence: None)
  Receive Date: 20040507
  Receipt Date: 20040428
  Transmission Date: 20050107
  Serious: Yes (Other)
  Sender: FDA-Public Use
  Company Number: 2004-03-1821

PATIENT

DRUGS (4)
  1. PEG-INTRON [Suspect]
     Indication: HEPATITIS C
     Dosage: -120*MCG/W SUBCUTANEOUS
     Route: 058
     Dates: start: 20031102, end: 20031116
  2. PEG-INTRON [Suspect]
     Indication: HEPATITIS C
     Dosage: -120*MCG/W SUBCUTANEOUS
     Route: 058
     Dates: start: 20031117
  3. RIBAVIRIN [Suspect]
     Indication: HEPATITIS C
     Dosage: -1.2*GM/D ORAL
     Route: 048
     Dates: start: 20031102, end: 20041116
  4. RIBAVIRIN [Suspect]
     Indication: HEPATITIS C
     Dosage: -1.2*GM/D ORAL
     Route: 048
     Dates: start: 20041117

REACTIONS (5)
  - AMMONIA INCREASED [None]
  - CEREBROVASCULAR ACCIDENT [None]
  - CONSTIPATION [None]
  - ENCEPHALOPATHY [None]
  - HEPATITIS C POSITIVE [None]
